FAERS Safety Report 25775522 (Version 1)
Quarter: 2025Q3

REPORT INFORMATION
  Report Type: Spontaneous
  Country: NZ (occurrence: NZ)
  Receive Date: 20250909
  Receipt Date: 20250909
  Transmission Date: 20251020
  Serious: Yes (Other)
  Sender: ORGANON
  Company Number: NZ-ORGANON-O2509NZL000136

PATIENT
  Age: 55 Year
  Sex: Male

DRUGS (1)
  1. FINASTERIDE [Suspect]
     Active Substance: FINASTERIDE

REACTIONS (3)
  - Amnesia [Unknown]
  - Insomnia [Unknown]
  - Anxiety [Unknown]
